FAERS Safety Report 21447968 (Version 6)
Quarter: 2023Q1

REPORT INFORMATION
  Report Type: Spontaneous
  Country: US (occurrence: US)
  Receive Date: 20221012
  Receipt Date: 20230331
  Transmission Date: 20230417
  Serious: No
  Sender: FDA-Public Use
  Company Number: US-BRISTOL-MYERS SQUIBB COMPANY-2022-118197

PATIENT
  Age: 25 Year
  Sex: Female

DRUGS (2)
  1. SPRYCEL [Suspect]
     Active Substance: DASATINIB
     Indication: Chronic myeloid leukaemia
     Route: 048
     Dates: start: 20220912
  2. SPRYCEL [Suspect]
     Active Substance: DASATINIB
     Route: 048
     Dates: start: 20220909

REACTIONS (8)
  - Pyrexia [Unknown]
  - Headache [Unknown]
  - Pain [Unknown]
  - Bone pain [Unknown]
  - Chills [Unknown]
  - Urticaria [Unknown]
  - Mental status changes [Unknown]
  - Skin exfoliation [Unknown]
